FAERS Safety Report 9366310 (Version 1)
Quarter: 2013Q2

REPORT INFORMATION
  Report Type: Spontaneous
  Country: US (occurrence: US)
  Receive Date: 20130625
  Receipt Date: 20130625
  Transmission Date: 20140414
  Serious: No
  Sender: FDA-Public Use
  Company Number: US-GLAXOSMITHKLINE-A0989707A

PATIENT
  Age: 82 Year
  Sex: Female

DRUGS (6)
  1. VERAMYST [Suspect]
     Indication: CHRONIC SINUSITIS
     Route: 045
     Dates: start: 201202, end: 20120815
  2. FLOVENT [Concomitant]
  3. SYNTHROID [Concomitant]
  4. CALCIUM SUPPLEMENT [Concomitant]
  5. MAGNESIUM [Concomitant]
  6. VITAMIN D [Concomitant]

REACTIONS (2)
  - Nervousness [Not Recovered/Not Resolved]
  - Muscle twitching [Unknown]
